FAERS Safety Report 9619413 (Version 2)
Quarter: 2013Q4

REPORT INFORMATION
  Report Type: Spontaneous
  Country: JP (occurrence: JP)
  Receive Date: 20131014
  Receipt Date: 20131129
  Transmission Date: 20140711
  Serious: Yes (Other)
  Sender: FDA-Public Use
  Company Number: PHHY2013JP113617

PATIENT
  Age: 66 Year
  Sex: Male

DRUGS (4)
  1. ZOMETA [Suspect]
     Indication: LUNG NEOPLASM MALIGNANT
     Dosage: UNK
     Route: 042
     Dates: end: 20120918
  2. ANTINEOPLASTIC AGENTS [Suspect]
  3. CARBOPLATIN [Concomitant]
     Dosage: UNK
     Route: 042
     Dates: start: 20120918
  4. PACLITAXEL [Concomitant]
     Dosage: UNK
     Route: 042
     Dates: start: 20120918

REACTIONS (2)
  - Diplegia [Recovering/Resolving]
  - Therapeutic response decreased [Unknown]
